FAERS Safety Report 17661130 (Version 2)
Quarter: 2021Q1

REPORT INFORMATION
  Report Type: Spontaneous
  Country: US (occurrence: US)
  Receive Date: 20200413
  Receipt Date: 20210119
  Transmission Date: 20210419
  Serious: No
  Sender: FDA-Public Use
  Company Number: US-SA-2020SA093791

PATIENT
  Age: 56 Year
  Sex: Female

DRUGS (6)
  1. DUPIXENT [Suspect]
     Active Substance: DUPILUMAB
     Indication: DERMATITIS ATOPIC
     Dosage: 300 MG, QOW
     Route: 058
     Dates: start: 20200219
  2. SUMATRIPTAN. [Concomitant]
     Active Substance: SUMATRIPTAN
  3. PROZAC [Concomitant]
     Active Substance: FLUOXETINE HYDROCHLORIDE
  4. GLUCOPHAGE [Concomitant]
     Active Substance: METFORMIN HYDROCHLORIDE
  5. PRILOSEC [Concomitant]
     Active Substance: OMEPRAZOLE MAGNESIUM
  6. DUPIXENT [Suspect]
     Active Substance: DUPILUMAB
     Dosage: EVERY 3 1/2 ?4 WKS
     Route: 058

REACTIONS (3)
  - Rash [Not Recovered/Not Resolved]
  - Eczema [Unknown]
  - Product use issue [Unknown]
